FAERS Safety Report 16637504 (Version 1)
Quarter: 2019Q3

REPORT INFORMATION
  Report Type: Spontaneous
  Country: US (occurrence: US)
  Receive Date: 20190726
  Receipt Date: 20190726
  Transmission Date: 20191004
  Serious: No
  Sender: FDA-Public Use
  Company Number: US-PERRIGO-18US011904

PATIENT
  Sex: Female
  Weight: 53.52 kg

DRUGS (2)
  1. MINOXIDIL. [Suspect]
     Active Substance: MINOXIDIL
     Indication: ALOPECIA
     Dosage: UNK, QD
     Route: 061
     Dates: start: 201712, end: 201806
  2. MINOXIDIL. [Suspect]
     Active Substance: MINOXIDIL
     Dosage: UNK, QD
     Route: 061
     Dates: start: 201807, end: 201808

REACTIONS (2)
  - Off label use [Recovered/Resolved]
  - Application site acne [Recovered/Resolved]

NARRATIVE: CASE EVENT DATE: 201712
